FAERS Safety Report 5442479-2 (Version None)
Quarter: 2007Q3

REPORT INFORMATION
  Report Type: 
  Country: None (occurrence: None)
  Receive Date: 20070904
  Receipt Date: 20070823
  Transmission Date: 20080115
  Serious: Yes (Other)
  Sender: FDA-Public Use
  Company Number: US-PFIZER INC-2007071413

PATIENT
  Sex: Female
  Weight: 63.636 kg

DRUGS (5)
  1. NEURONTIN [Suspect]
     Indication: BACK PAIN
  2. NEURONTIN [Suspect]
     Indication: PAIN IN EXTREMITY
  3. OXYCODONE HCL [Concomitant]
  4. OXYCONTIN [Concomitant]
  5. LIPITOR [Concomitant]

REACTIONS (4)
  - ABASIA [None]
  - DEPRESSION [None]
  - PAIN [None]
  - SUICIDAL IDEATION [None]
